FAERS Safety Report 15671760 (Version 2)
Quarter: 2019Q4

REPORT INFORMATION
  Report Type: Report from Study
  Country: US (occurrence: US)
  Receive Date: 20181129
  Receipt Date: 20191023
  Transmission Date: 20200122
  Serious: Yes (Hospitalization)
  Sender: FDA-Public Use
  Company Number: US-TESARO-US-2018TSO04372

PATIENT
  Age: 83 Year
  Sex: Female
  Weight: 68.48 kg

DRUGS (6)
  1. GABAPENTINA APOTEX [Concomitant]
     Indication: PRODUCT USED FOR UNKNOWN INDICATION
  2. LOSARTAN POTASSIUM/HCTZ [Concomitant]
     Active Substance: HYDROCHLOROTHIAZIDE\LOSARTAN POTASSIUM
     Indication: PRODUCT USED FOR UNKNOWN INDICATION
  3. FLONASE [Concomitant]
     Active Substance: FLUTICASONE PROPIONATE
     Indication: PRODUCT USED FOR UNKNOWN INDICATION
  4. NIRAPARIB CAPSULE [Suspect]
     Active Substance: NIRAPARIB
     Indication: OVARIAN CANCER
     Dosage: 200 MG, QD
     Route: 048
     Dates: start: 20180816, end: 20191015
  5. PRAMIPEXOLE DIHYDROCHLORIDE BRECKENRIDGE [Concomitant]
     Indication: PRODUCT USED FOR UNKNOWN INDICATION
  6. SUMATRIPTAN SUCCINATE. [Concomitant]
     Active Substance: SUMATRIPTAN SUCCINATE
     Indication: PRODUCT USED FOR UNKNOWN INDICATION

REACTIONS (8)
  - Feeding disorder [Unknown]
  - Rhinorrhoea [Not Recovered/Not Resolved]
  - Restless legs syndrome [Unknown]
  - Foot deformity [Unknown]
  - Pain in extremity [Unknown]
  - Vomiting [Unknown]
  - Muscle spasms [Unknown]
  - Intentional underdose [Unknown]

NARRATIVE: CASE EVENT DATE: 20180827
